FAERS Safety Report 13995983 (Version 2)
Quarter: 2019Q2

REPORT INFORMATION
  Report Type: Spontaneous
  Country: GB (occurrence: GB)
  Receive Date: 20170921
  Receipt Date: 20190427
  Transmission Date: 20190711
  Serious: Yes (Life-Threatening, Other)
  Sender: FDA-Public Use
  Company Number: GB-AUROBINDO-AUR-APL-2017-40484

PATIENT

DRUGS (2)
  1. INSULIN ASPART [Concomitant]
     Active Substance: INSULIN ASPART
     Indication: DIABETES MELLITUS
     Dosage: UNK,32 UNITS AND 38 UNITS.
  2. GABAPENTIN. [Suspect]
     Active Substance: GABAPENTIN
     Indication: NEURALGIA
     Dosage: 100 MG, 3 TIMES A DAY
     Route: 065
     Dates: start: 201304, end: 201306

REACTIONS (2)
  - Tendon rupture [Recovered/Resolved]
  - Skin induration [Not Recovered/Not Resolved]
